FAERS Safety Report 6496434-4 (Version None)
Quarter: 2009Q4

REPORT INFORMATION
  Report Type: 
  Country: None (occurrence: None)
  Receive Date: 20091125
  Receipt Date: 20081009
  Transmission Date: 20100525
  Serious: Yes (Other)
  Sender: FDA-Public Use
  Company Number: 2008BH010825

PATIENT
  Age: 74 Year
  Sex: Male

DRUGS (3)
  1. DIANEAL [Suspect]
     Indication: PERITONEAL DIALYSIS
     Dosage: UNK ; IP
     Route: 033
     Dates: start: 20080109
  2. DIANEAL [Suspect]
     Indication: PERITONITIS
     Dosage: UNK ; IP
     Route: 033
     Dates: start: 20080109
  3. DIANEAL [Suspect]
     Indication: PERITONEAL DIALYSIS
     Dosage: UNK PD4, ULTRABAG CONTAINER
     Route: 033
     Dates: start: 20080109

REACTIONS (1)
  - PERITONITIS BACTERIAL [None]
